FAERS Safety Report 5974950-9 (Version None)
Quarter: 2008Q4

REPORT INFORMATION
  Report Type: 
  Country: None (occurrence: None)
  Receive Date: 20081202
  Receipt Date: 20081127
  Transmission Date: 20090506
  Serious: Yes (Hospitalization, Other)
  Sender: FDA-Public Use
  Company Number: JP-PFIZER INC-2008100869

PATIENT
  Age: 56 Year
  Sex: Male

DRUGS (2)
  1. HALCION [Suspect]
     Dosage: TEXT:1 TABLET-FREQ:DAILY
     Route: 048
  2. ROHYPNOL [Concomitant]

REACTIONS (3)
  - BLOOD CREATINE PHOSPHOKINASE INCREASED [None]
  - CHEST PAIN [None]
  - DYSPNOEA [None]
